FAERS Safety Report 6426994-0 (Version None)
Quarter: 2009Q4

REPORT INFORMATION
  Report Type: 
  Country: None (occurrence: None)
  Receive Date: 20091103
  Receipt Date: 20091103
  Transmission Date: 20100525
  Serious: Yes (Hospitalization)
  Sender: FDA-Public Use
  Company Number: None

PATIENT
  Age: 70 Year
  Sex: Male
  Weight: 61.41 kg

DRUGS (1)
  1. INSULIN [Suspect]
     Dates: start: 20090504, end: 20090511

REACTIONS (1)
  - HYPERGLYCAEMIA [None]
